FAERS Safety Report 10682159 (Version 3)
Quarter: 2015Q1

REPORT INFORMATION
  Report Type: Spontaneous
  Country: US (occurrence: US)
  Receive Date: 20141230
  Receipt Date: 20150115
  Transmission Date: 20150720
  Serious: No
  Sender: FDA-Public Use
  Company Number: US-PFIZER INC-2014358919

PATIENT
  Age: 84 Year
  Sex: Female

DRUGS (1)
  1. LYRICA [Suspect]
     Active Substance: PREGABALIN
     Indication: POST HERPETIC NEURALGIA
     Dosage: 25 MG, (1 DF) SINGLE
     Dates: start: 20141223, end: 20141223

REACTIONS (4)
  - Nausea [Unknown]
  - Dizziness [Unknown]
  - Malaise [Unknown]
  - Dysstasia [Unknown]
